FAERS Safety Report 4299496-8 (Version None)
Quarter: 2004Q1

REPORT INFORMATION
  Report Type: 
  Country: None (occurrence: None)
  Receive Date: 20040217
  Receipt Date: 20040129
  Transmission Date: 20041129
  Serious: Yes (Hospitalization, Other)
  Sender: FDA-Public Use
  Company Number: 200329449BWH

PATIENT
  Age: 22 Year
  Sex: Female
  Weight: 63.5036 kg

DRUGS (1)
  1. AVELOX [Suspect]
     Indication: SINUSITIS
     Dosage: 400 MG, QD, ORAL
     Route: 048

REACTIONS (4)
  - COLITIS [None]
  - CROHN'S DISEASE [None]
  - ILEUS [None]
  - WEIGHT DECREASED [None]
